FAERS Safety Report 5918593-1 (Version None)
Quarter: 2008Q4

REPORT INFORMATION
  Report Type: 
  Country: None (occurrence: None)
  Receive Date: 20081015
  Receipt Date: 20080930
  Transmission Date: 20090506
  Serious: Yes (Death, Hospitalization)
  Sender: FDA-Public Use
  Company Number: PHHY2008KR18683

PATIENT
  Sex: Female

DRUGS (1)
  1. GLEEVEC [Suspect]
     Indication: GASTROINTESTINAL STROMAL TUMOUR
     Dosage: 400 MG/DAY
     Route: 048
     Dates: start: 20030218

REACTIONS (4)
  - ANOREXIA [None]
  - DISEASE PROGRESSION [None]
  - FATIGUE [None]
  - HYPOVOLAEMIA [None]
